FAERS Safety Report 4843307-6 (Version None)
Quarter: 2005Q4

REPORT INFORMATION
  Report Type: 
  Country: None (occurrence: None)
  Receive Date: 20051201
  Receipt Date: 20050804
  Transmission Date: 20060501
  Serious: Yes (Death, Other)
  Sender: FDA-Public Use
  Company Number: US-MERCK-0508USA01455

PATIENT
  Age: 55 Year
  Sex: Male
  Weight: 86 kg

DRUGS (9)
  1. VIOXX [Suspect]
     Indication: MYALGIA
     Route: 048
     Dates: start: 20040419, end: 20040716
  2. VIOXX [Suspect]
     Indication: PAIN IN EXTREMITY
     Route: 048
     Dates: start: 20040419, end: 20040716
  3. LORTAB [Concomitant]
     Route: 065
  4. CYCLOBENZAPRINE HYDROCHLORIDE [Concomitant]
     Route: 065
  5. NEURONTIN [Concomitant]
     Route: 065
  6. HYDROCODONE BITARTRATE [Concomitant]
     Route: 065
  7. FLEXERIL [Concomitant]
     Route: 065
  8. XANAX [Concomitant]
     Route: 065
  9. BEXTRA [Concomitant]
     Route: 065
     Dates: start: 20040318, end: 20040419

REACTIONS (3)
  - CARDIAC ARREST [None]
  - DEATH [None]
  - MYOCARDIAL INFARCTION [None]
